FAERS Safety Report 10694724 (Version 1)
Quarter: 2015Q1

REPORT INFORMATION
  Report Type: Spontaneous
  Country: CA (occurrence: CA)
  Receive Date: 20150107
  Receipt Date: 20150107
  Transmission Date: 20150721
  Serious: Yes (Other)
  Sender: FDA-Public Use
  Company Number: CA-ROCHE-1517332

PATIENT
  Age: 57 Year
  Sex: Male
  Weight: 84 kg

DRUGS (9)
  1. RIBAVIRIN. [Suspect]
     Active Substance: RIBAVIRIN
     Indication: HEPATITIS C
     Route: 048
  2. ASCORBIC ACID. [Concomitant]
     Active Substance: ASCORBIC ACID
     Route: 065
  3. ESCITALOPRAM OXALATE. [Concomitant]
     Active Substance: ESCITALOPRAM OXALATE
  4. PEGASYS [Suspect]
     Active Substance: PEGINTERFERON ALFA-2A
     Dosage: THERAPY DURATION:  231.0 DAY (S)
     Route: 058
  5. RIBAVIRIN. [Suspect]
     Active Substance: RIBAVIRIN
     Route: 065
  6. PEGASYS [Suspect]
     Active Substance: PEGINTERFERON ALFA-2A
     Indication: HEPATITIS C
     Route: 058
  7. INCIVEK [Suspect]
     Active Substance: TELAPREVIR
     Indication: HEPATITIS C
     Route: 048
  8. PEGASYS [Suspect]
     Active Substance: PEGINTERFERON ALFA-2A
     Route: 065
  9. MILK THISTLE [Concomitant]
     Active Substance: MILK THISTLE
     Route: 065

REACTIONS (6)
  - Staphylococcal sepsis [Unknown]
  - Lethargy [Unknown]
  - Endocarditis [Unknown]
  - Pyrexia [Unknown]
  - Escherichia bacteraemia [Unknown]
  - Speech disorder [Unknown]
